FAERS Safety Report 9060086 (Version 1)
Quarter: 2013Q1

REPORT INFORMATION
  Report Type: Spontaneous
  Country: FR (occurrence: FR)
  Receive Date: 20130212
  Receipt Date: 20130212
  Transmission Date: 20140127
  Serious: Yes (Hospitalization, Other)
  Sender: FDA-Public Use
  Company Number: FR-JNJFOC-20130113575

PATIENT
  Age: 40 Year
  Sex: Male
  Weight: 71 kg

DRUGS (2)
  1. REMICADE [Suspect]
     Indication: CROHN^S DISEASE
     Dosage: FOLLOWING INFUSIONS AT WEEK 2, 6, 14 AND 22 (APPROXIMATELY EVERY 8 WEEKS)
     Route: 042
     Dates: start: 200906
  2. REMICADE [Suspect]
     Indication: CROHN^S DISEASE
     Dosage: INFUSION LASTED 1 HOUR
     Route: 042
     Dates: start: 20121204

REACTIONS (5)
  - Bundle branch block right [Unknown]
  - Face oedema [Recovered/Resolved]
  - Chest discomfort [Recovered/Resolved]
  - Feeling abnormal [Recovered/Resolved]
  - Conjunctivitis [Recovered/Resolved]
